FAERS Safety Report 9753819 (Version 1)
Quarter: 2013Q4

REPORT INFORMATION
  Report Type: Spontaneous
  Country: US (occurrence: US)
  Receive Date: 20131213
  Receipt Date: 20131213
  Transmission Date: 20140711
  Serious: No
  Sender: FDA-Public Use
  Company Number: US-GILEAD-2010-0027197

PATIENT
  Sex: Female
  Weight: 63.5 kg

DRUGS (20)
  1. LETAIRIS [Suspect]
     Indication: PULMONARY ARTERIAL HYPERTENSION
     Route: 048
     Dates: start: 20091111
  2. VENTAVIS [Concomitant]
  3. QUINAPRIL [Concomitant]
  4. LASIX [Concomitant]
  5. ADVAIR 100-50 DISK [Concomitant]
  6. IPRATR-ALBUTEROL [Concomitant]
  7. NITROGLYCERIN [Concomitant]
  8. BONIVA [Concomitant]
  9. SINGULAIR [Concomitant]
  10. HYDROCODONE W/APAP [Concomitant]
  11. ETODOLAC ER [Concomitant]
  12. FOLIC ACID [Concomitant]
  13. VITAMIN D [Concomitant]
  14. OMEGA 3 FISH OIL [Concomitant]
  15. LEVOTHYROXINE [Concomitant]
  16. COSOPT EYE DROP [Concomitant]
  17. XALATAN EYE DROP [Concomitant]
  18. PRILOSEC [Concomitant]
  19. PAMELOR [Concomitant]
  20. OXYGEN [Concomitant]

REACTIONS (1)
  - Dyspnoea [Unknown]
